FAERS Safety Report 9119569 (Version 2)
Quarter: 2013Q1

REPORT INFORMATION
  Report Type: Spontaneous
  Country: US (occurrence: US)
  Receive Date: 20130207
  Receipt Date: 20130321
  Transmission Date: 20140127
  Serious: Yes (Other)
  Sender: FDA-Public Use
  Company Number: US-PFIZER INC-2012045626

PATIENT
  Age: 43 Year
  Sex: Female
  Weight: 58.96 kg

DRUGS (4)
  1. LYRICA [Suspect]
     Indication: FIBROMYALGIA
     Dosage: 200 MG, 3X/DAY
     Route: 048
  2. PRISTIQ [Suspect]
     Dosage: UNK
  3. CELEBREX [Suspect]
     Dosage: UNK
  4. OXYCODONE [Concomitant]
     Indication: PAIN
     Dosage: 15 MG, 5X/DAY

REACTIONS (2)
  - Nephrolithiasis [Unknown]
  - Poor quality drug administered [Unknown]
